FAERS Safety Report 7722206-6 (Version None)
Quarter: 2011Q3

REPORT INFORMATION
  Report Type: 
  Country: None (occurrence: None)
  Receive Date: 20110831
  Receipt Date: 20110825
  Transmission Date: 20111222
  Serious: Yes (Hospitalization, Other)
  Sender: FDA-Public Use
  Company Number: US-JNJFOC-20110811667

PATIENT
  Sex: Male
  Weight: 36.7 kg

DRUGS (9)
  1. CELEXA [Concomitant]
  2. HYDROCORTISONE [Concomitant]
  3. INFLIXIMAB, RECOMBINANT [Suspect]
     Indication: INFLAMMATORY BOWEL DISEASE
     Route: 042
     Dates: start: 20101029
  4. METRONIDAZOLE [Concomitant]
  5. IMMUNOGLOBULINS [Concomitant]
  6. INFLIXIMAB, RECOMBINANT [Suspect]
     Route: 042
     Dates: start: 20110719
  7. PREDNISONE [Concomitant]
  8. AZATHIOPRINE [Concomitant]
  9. FAMOTIDINE [Concomitant]

REACTIONS (1)
  - ROTAVIRUS INFECTION [None]
